FAERS Safety Report 13084507 (Version 2)
Quarter: 2017Q1

REPORT INFORMATION
  Report Type: Other
  Country: IT (occurrence: IT)
  Receive Date: 20170104
  Receipt Date: 20170216
  Transmission Date: 20170428
  Serious: Yes (Other)
  Sender: FDA-Public Use
  Company Number: IT-VALIDUS PHARMACEUTICALS LLC-IT-2016VAL003224

PATIENT
  Sex: Male

DRUGS (1)
  1. ROCALTROL [Suspect]
     Active Substance: CALCITRIOL
     Indication: HYPOPARATHYROIDISM
     Dosage: CAPSULES 0.50 (1 DF,2 IN 1 D)
     Route: 048
     Dates: start: 201608, end: 20161212

REACTIONS (5)
  - Swollen tongue [Recovered/Resolved]
  - Mydriasis [Unknown]
  - Vision blurred [Unknown]
  - Headache [Unknown]
  - Eye swelling [Recovered/Resolved]
